FAERS Safety Report 10576528 (Version 5)
Quarter: 2018Q1

REPORT INFORMATION
  Report Type: Report from Study
  Country: None (occurrence: US)
  Receive Date: 20141111
  Receipt Date: 20180206
  Transmission Date: 20180508
  Serious: Yes (Hospitalization, Other)
  Sender: FDA-Public Use
  Company Number: US-ABBVIE-14P-163-1302220-00

PATIENT
  Age: 74 Year
  Sex: Male
  Weight: 78.54 kg

DRUGS (4)
  1. HUMIRA [Suspect]
     Active Substance: ADALIMUMAB
     Indication: RHEUMATOID ARTHRITIS
     Route: 058
     Dates: start: 20140728, end: 2014
  2. HUMIRA [Suspect]
     Active Substance: ADALIMUMAB
     Route: 058
     Dates: start: 20141215, end: 2017
  3. HUMIRA [Suspect]
     Active Substance: ADALIMUMAB
     Route: 058
     Dates: start: 20141108, end: 2014
  4. HUMIRA [Suspect]
     Active Substance: ADALIMUMAB
     Route: 058
     Dates: start: 20140811, end: 2014

REACTIONS (5)
  - Osteoarthritis [Recovered/Resolved]
  - Knee arthroplasty [Unknown]
  - Hip arthroplasty [Not Recovered/Not Resolved]
  - Femur fracture [Unknown]
  - Post procedural infection [Recovering/Resolving]

NARRATIVE: CASE EVENT DATE: 2014
